FAERS Safety Report 9610695 (Version 1)
Quarter: 2013Q4

REPORT INFORMATION
  Report Type: Report from Study
  Country: US (occurrence: US)
  Receive Date: 20131009
  Receipt Date: 20131009
  Transmission Date: 20140711
  Serious: Yes (Other)
  Sender: FDA-Public Use
  Company Number: US-ROCHE-1285341

PATIENT
  Sex: Female

DRUGS (6)
  1. AVASTIN [Suspect]
     Indication: DIABETIC RETINOPATHY
     Dosage: OS
     Route: 065
  2. AVASTIN [Suspect]
     Indication: DIABETIC RETINAL OEDEMA
  3. JANUVIA [Concomitant]
     Route: 065
  4. GLIMEPIRIDE [Concomitant]
     Route: 065
  5. METFORMIN HYDROCHLORIDE [Concomitant]
     Route: 065
  6. SIMVASTATIN [Concomitant]
     Dosage: 1 TAB IN THE EVENING.
     Route: 065

REACTIONS (2)
  - Macular oedema [Unknown]
  - Off label use [Unknown]
